FAERS Safety Report 9524703 (Version 2)
Quarter: 2013Q3

REPORT INFORMATION
  Report Type: Report from Study
  Country: CA (occurrence: CA)
  Receive Date: 20130916
  Receipt Date: 20130916
  Transmission Date: 20140515
  Serious: Yes (Death)
  Sender: FDA-Public Use
  Company Number: PHHY2013CA089362

PATIENT
  Age: 71 Year
  Sex: Male

DRUGS (1)
  1. SANDOSTATIN LAR [Suspect]
     Indication: NEUROENDOCRINE TUMOUR
     Dosage: 20 MG, ONCE A MONTH
     Route: 030
     Dates: start: 20130809, end: 20130905

REACTIONS (2)
  - Death [Fatal]
  - Diarrhoea [Unknown]
